FAERS Safety Report 10726460 (Version 1)
Quarter: 2015Q1

REPORT INFORMATION
  Report Type: Spontaneous
  Country: GR (occurrence: GR)
  Receive Date: 20150121
  Receipt Date: 20150121
  Transmission Date: 20150721
  Serious: Yes (Hospitalization)
  Sender: FDA-Public Use
  Company Number: GR-009507513-1501GRC004999

PATIENT
  Age: 72 Year
  Sex: Female

DRUGS (2)
  1. INEGY [Suspect]
     Active Substance: EZETIMIBE\SIMVASTATIN
     Indication: DYSLIPIDAEMIA
     Dosage: 1 TABLET (10/40 MG) EVERY DAY
     Route: 048
     Dates: start: 2014
  2. APIDRA [Concomitant]
     Active Substance: INSULIN GLULISINE
     Dosage: UNK

REACTIONS (2)
  - Asthma [Unknown]
  - Asthma [Unknown]

NARRATIVE: CASE EVENT DATE: 20141225
